FAERS Safety Report 25149146 (Version 1)
Quarter: 2025Q2

REPORT INFORMATION
  Report Type: Spontaneous
  Country: PL (occurrence: PL)
  Receive Date: 20250402
  Receipt Date: 20250402
  Transmission Date: 20250716
  Serious: Yes (Congenital Anomaly)
  Sender: ROCHE
  Company Number: PL-ROCHE-10000242024

PATIENT
  Sex: Female
  Weight: 3.69 kg

DRUGS (2)
  1. OCREVUS [Suspect]
     Active Substance: OCRELIZUMAB
     Indication: Product used for unknown indication
     Route: 064
  2. LEVOTHYROXINE SODIUM [Concomitant]
     Active Substance: LEVOTHYROXINE SODIUM
     Indication: Hypothyroidism
     Dates: start: 2020

REACTIONS (2)
  - Deafness congenital [Unknown]
  - Foetal exposure during pregnancy [Unknown]
